FAERS Safety Report 8259077 (Version 10)
Quarter: 2012Q4

REPORT INFORMATION
  Report Type: 
  Country: CA (occurrence: CA)
  Receive Date: 20111122
  Receipt Date: 20120910
  Transmission Date: 20130627
  Serious: Yes (Other)
  Sender: FDA-Public Use
  Company Number: PHHY2011CA67004

PATIENT
  Age: 67 Year
  Sex: Male

DRUGS (4)
  1. SANDOSTATIN LAR [Suspect]
     Indication: CARCINOID TUMOUR
     Dosage: 30 mg, once a month
     Route: 030
     Dates: start: 20110617
  2. SANDOSTATIN LAR [Suspect]
     Dosage: 40 mg, X3
     Route: 030
     Dates: start: 20120612
  3. SANDOSTATIN LAR [Suspect]
     Dosage: 40 mg, QMO
     Route: 030
  4. ASA [Concomitant]
     Dosage: 81 mg daily

REACTIONS (17)
  - Tricuspid valve disease [Unknown]
  - Pneumonia [Unknown]
  - Jaundice [Unknown]
  - Renal failure [Unknown]
  - Blood potassium increased [Recovering/Resolving]
  - Blood urea increased [Unknown]
  - Blood creatinine increased [Recovering/Resolving]
  - Blood pressure increased [Recovering/Resolving]
  - Heart rate decreased [Unknown]
  - Dysphagia [Unknown]
  - Injection site pain [Unknown]
  - Pruritus [Unknown]
  - Heart rate irregular [Unknown]
  - Stress [Unknown]
  - Flushing [Unknown]
  - Diarrhoea [Unknown]
  - Heart rate increased [Unknown]
